FAERS Safety Report 11276644 (Version 1)
Quarter: 2015Q3

REPORT INFORMATION
  Report Type: Spontaneous
  Country: US (occurrence: US)
  Receive Date: 20150716
  Receipt Date: 20150716
  Transmission Date: 20151125
  Serious: Yes (Other)
  Sender: FDA-Public Use
  Company Number: US-BAXTER-2015BAX038163

PATIENT
  Sex: Male

DRUGS (1)
  1. TISSEEL KIT [Suspect]
     Active Substance: FIBRINOGEN HUMAN\THROMBIN HUMAN
     Indication: TISSUE SEALING
     Route: 065

REACTIONS (14)
  - Abdominal pain lower [Unknown]
  - Pain [Unknown]
  - Nausea [Unknown]
  - Infection [Unknown]
  - Inflammation [Unknown]
  - Blood urine present [Unknown]
  - Heart rate increased [Unknown]
  - Pyrexia [Unknown]
  - Septic shock [Unknown]
  - Blood pressure increased [Unknown]
  - Vomiting [Unknown]
  - Discomfort [Unknown]
  - Septic necrosis [Unknown]
  - Sepsis [Unknown]
